FAERS Safety Report 22140915 (Version 2)
Quarter: 2023Q1

REPORT INFORMATION
  Report Type: Spontaneous
  Country: IT (occurrence: IT)
  Receive Date: 20230327
  Receipt Date: 20230328
  Transmission Date: 20230417
  Serious: Yes (Other)
  Sender: FDA-Public Use
  Company Number: IT-Accord-303423

PATIENT
  Age: 12 Year
  Sex: Male
  Weight: 40 kg

DRUGS (2)
  1. METHOTREXATE [Suspect]
     Active Substance: METHOTREXATE
     Indication: Product used for unknown indication
     Dosage: 12 G/M2 ,INFUSED IN 3.5 HOURS
     Route: 065
  2. METHOTREXATE [Suspect]
     Active Substance: METHOTREXATE
     Indication: Osteosarcoma

REACTIONS (6)
  - Hypertension [Recovering/Resolving]
  - Hypersensitivity [Unknown]
  - Acute kidney injury [Unknown]
  - Drug level increased [Recovered/Resolved]
  - Diarrhoea [Unknown]
  - Vomiting [Unknown]
